FAERS Safety Report 20432834 (Version 1)
Quarter: 2022Q1

REPORT INFORMATION
  Report Type: Spontaneous
  Country: TR (occurrence: TR)
  Receive Date: 20220205
  Receipt Date: 20220205
  Transmission Date: 20220423
  Serious: Yes (Hospitalization, Other)
  Sender: FDA-Public Use
  Company Number: TR-EPICPHARMA-TR-2022EPCLIT00110

PATIENT

DRUGS (1)
  1. ERGOCALCIFEROL [Suspect]
     Active Substance: ERGOCALCIFEROL
     Indication: Vitamin D deficiency
     Route: 048

REACTIONS (6)
  - Toxicity to various agents [Unknown]
  - Premature labour [Unknown]
  - Nephrocalcinosis [Unknown]
  - Accidental overdose [Unknown]
  - Product prescribing error [Unknown]
  - Maternal exposure during pregnancy [Unknown]
